FAERS Safety Report 22232989 (Version 3)
Quarter: 2023Q2

REPORT INFORMATION
  Report Type: Spontaneous
  Country: US (occurrence: None)
  Receive Date: 20230420
  Receipt Date: 20230615
  Transmission Date: 20230722
  Serious: No
  Sender: FDA-Public Use
  Company Number: 2023A085605

PATIENT
  Age: 20730 Day
  Sex: Female

DRUGS (1)
  1. BREZTRI [Suspect]
     Active Substance: BUDESONIDE\FORMOTEROL\GLYCOPYRROLATE
     Indication: Chronic obstructive pulmonary disease
     Dosage: 160.0UG/INHAL UNKNOWN
     Route: 055

REACTIONS (8)
  - Multiple allergies [Unknown]
  - Feeling jittery [Recovered/Resolved]
  - Nasal congestion [Unknown]
  - Tremor [Unknown]
  - Hypersensitivity [Unknown]
  - Palpitations [Recovered/Resolved]
  - Drug ineffective [Unknown]
  - Product formulation issue [Unknown]

NARRATIVE: CASE EVENT DATE: 20110410
